FAERS Safety Report 9448374 (Version 2)
Quarter: 2013Q3

REPORT INFORMATION
  Report Type: Spontaneous
  Country: JP (occurrence: JP)
  Receive Date: 20130808
  Receipt Date: 20130924
  Transmission Date: 20140515
  Serious: Yes (Hospitalization, Other)
  Sender: FDA-Public Use
  Company Number: JP-SANOFI-AVENTIS-2013SA077908

PATIENT
  Age: 54 Year
  Sex: Male

DRUGS (1)
  1. ONETAXOTERE [Suspect]
     Indication: LUNG ADENOCARCINOMA STAGE IV
     Dosage: 100 MG/BODY TRI WEEKLY
     Route: 042
     Dates: start: 20120713, end: 20120822

REACTIONS (7)
  - Lung disorder [Recovered/Resolved]
  - Pleural effusion [Recovered/Resolved]
  - Dyspnoea [Recovered/Resolved]
  - PO2 decreased [Recovered/Resolved]
  - Cell marker increased [Recovered/Resolved]
  - Blood lactate dehydrogenase increased [Recovered/Resolved]
  - C-reactive protein increased [Recovered/Resolved]
